FAERS Safety Report 9369993 (Version 1)
Quarter: 2013Q2

REPORT INFORMATION
  Report Type: Spontaneous
  Country: US (occurrence: US)
  Receive Date: 20130626
  Receipt Date: 20130626
  Transmission Date: 20140414
  Serious: No
  Sender: FDA-Public Use
  Company Number: US-MYLANLABS-2012S1013904

PATIENT
  Sex: Female

DRUGS (7)
  1. METHOTREXATE TABLETS, USP [Suspect]
     Indication: PSORIASIS
     Route: 048
  2. LEVOTHYROXINE SODIUM TABLETS, USP [Interacting]
     Indication: HYPOTHYROIDISM
     Route: 048
  3. LEVOTHYROXINE SODIUM TABLETS, USP [Interacting]
     Indication: HYPOTHYROIDISM
     Route: 048
  4. LEVOTHYROXINE SODIUM TABLETS, USP [Interacting]
     Indication: HYPOTHYROIDISM
     Route: 048
  5. VECTICAL [Concomitant]
     Indication: PSORIASIS
     Route: 061
  6. CERAMIDE [Concomitant]
     Indication: PSORIASIS
     Dosage: EPICERAM
     Route: 061
  7. TYLENOL [Concomitant]

REACTIONS (1)
  - Drug interaction [Not Recovered/Not Resolved]
